FAERS Safety Report 9691390 (Version 1)
Quarter: 2013Q4

REPORT INFORMATION
  Report Type: Spontaneous
  Country: US (occurrence: US)
  Receive Date: 20131115
  Receipt Date: 20131115
  Transmission Date: 20140711
  Serious: Yes (Hospitalization, Other)
  Sender: FDA-Public Use
  Company Number: US-PFIZER INC-2013327215

PATIENT
  Age: 57 Year
  Sex: Female
  Weight: 107.94 kg

DRUGS (1)
  1. NEURONTIN [Suspect]
     Indication: DIABETIC NEUROPATHY
     Dosage: 1200 MG, 3X/DAY
     Route: 048
     Dates: end: 201306

REACTIONS (2)
  - Road traffic accident [Unknown]
  - Somnolence [Unknown]
